FAERS Safety Report 14604137 (Version 1)
Quarter: 2018Q1

REPORT INFORMATION
  Report Type: Spontaneous
  Country: CZ (occurrence: CZ)
  Receive Date: 20180306
  Receipt Date: 20180306
  Transmission Date: 20180509
  Serious: Yes (Other)
  Sender: FDA-Public Use
  Company Number: CZ-ASTRAZENECA-2018SE24774

PATIENT
  Age: 35 Year
  Sex: Female

DRUGS (3)
  1. TARDYFERON [Concomitant]
     Active Substance: FERROUS SULFATE
     Dosage: AT THE TIME OF MENSTRUATION
     Dates: start: 20171002, end: 20171010
  2. BUDIAIR [Suspect]
     Active Substance: BUDESONIDE
     Dosage: 200MG 2 BREATHS IN THE EVENING
     Route: 055
     Dates: start: 20171023, end: 20171031
  3. VENTOLIN [Concomitant]
     Active Substance: ALBUTEROL SULFATE
     Dosage: IN CASE OF DIFFICULTY, USED TWICE IN TOTAL
     Dates: start: 20171023, end: 20171029

REACTIONS (6)
  - Dry mouth [Recovered/Resolved]
  - Tongue oedema [Recovered/Resolved]
  - Oral mucosal erythema [Recovered/Resolved]
  - Dysgeusia [Recovered/Resolved]
  - Tongue discomfort [Recovered/Resolved]
  - Lip swelling [Recovered/Resolved]

NARRATIVE: CASE EVENT DATE: 20171029
